FAERS Safety Report 8877574 (Version 2)
Quarter: 2012Q4

REPORT INFORMATION
  Report Type: 
  Country: CA (occurrence: CA)
  Receive Date: 20121024
  Receipt Date: 20121101
  Transmission Date: 20130627
  Serious: Yes (Other)
  Sender: FDA-Public Use
  Company Number: CA-ROCHE-1147321

PATIENT
  Age: 82 Year
  Sex: Female

DRUGS (3)
  1. XOLAIR [Suspect]
     Indication: ASTHMA
     Route: 058
     Dates: start: 20120827
  2. ZENHALE [Concomitant]
  3. SPIRIVA [Concomitant]

REACTIONS (6)
  - Nasopharyngitis [Unknown]
  - Wheezing [Unknown]
  - Dyspnoea [Unknown]
  - Pulmonary congestion [Unknown]
  - Breath sounds abnormal [Unknown]
  - Body temperature increased [Unknown]
